FAERS Safety Report 9678877 (Version 2)
Quarter: 2013Q4

REPORT INFORMATION
  Report Type: Spontaneous
  Country: CA (occurrence: CA)
  Receive Date: 20131108
  Receipt Date: 20131108
  Transmission Date: 20140711
  Serious: Yes (Hospitalization)
  Sender: FDA-Public Use
  Company Number: CA-CUBIST PHARMACEUTICALS, INC.-2013CBST001094

PATIENT
  Sex: 0

DRUGS (3)
  1. CUBICIN [Suspect]
     Indication: STAPHYLOCOCCAL OSTEOMYELITIS
     Dosage: 8 MG/KG, UNK
     Route: 065
  2. CUBICIN [Suspect]
     Indication: OFF LABEL USE
     Dosage: 12 MG/KG, UNK
     Route: 065
  3. NAFCILLIN [Concomitant]
     Indication: STAPHYLOCOCCAL OSTEOMYELITIS
     Dosage: UNK UNK, UNK
     Route: 065

REACTIONS (2)
  - Infection [Recovering/Resolving]
  - Antimicrobial susceptibility test resistant [Unknown]
